FAERS Safety Report 12042590 (Version 4)
Quarter: 2016Q2

REPORT INFORMATION
  Report Type: Report from Study
  Country: CN (occurrence: CN)
  Receive Date: 20160208
  Receipt Date: 20160506
  Transmission Date: 20160815
  Serious: Yes (Hospitalization)
  Sender: FDA-Public Use
  Company Number: CN-KADMON PHARMACEUTICALS, LLC-KAD201602-000409

PATIENT
  Age: 65 Year
  Sex: Female
  Weight: 56 kg

DRUGS (10)
  1. RIBAVIRIN. [Suspect]
     Active Substance: RIBAVIRIN
     Indication: CHRONIC HEPATITIS C
     Dosage: TABLET; DIVIDED DOSES DAILY: TOTAL DAILY DOSE 1000 MG (500 MG, 2 IN 1 DAY)
     Route: 048
     Dates: start: 20151229, end: 20160128
  2. OMBITASVIR/PARITAPREVIR/RITONAVIR [Suspect]
     Active Substance: OMBITASVIR\PARITAPREVIR\RITONAVIR
     Indication: CHRONIC HEPATITIS C
     Dosage: TABLET
     Route: 048
     Dates: start: 20151229, end: 20160321
  3. DASABUVIR 250 MG TABLET [Suspect]
     Active Substance: DASABUVIR
     Indication: HEPATIC CIRRHOSIS
  4. RIBAVIRIN. [Suspect]
     Active Substance: RIBAVIRIN
     Indication: HEPATIC CIRRHOSIS
     Dosage: TABLET, DIVIDED DOSE DAILY: TOTAL DAILY DOSE 600 MG
     Route: 048
     Dates: start: 20160129, end: 20160204
  5. RIBAVIRIN. [Suspect]
     Active Substance: RIBAVIRIN
     Dosage: TABLET, DIVIDED DOSES DAILY; TOTAL DAILY DOSE (600 MG)
     Route: 048
     Dates: start: 20160308, end: 20160321
  6. ZHENJU JIANGYA (CHINESE TRADITIONAL MEDICINE) [Concomitant]
     Indication: HYPERTENSION
     Dosage: TABLET
     Route: 048
     Dates: start: 201509, end: 20160128
  7. RIBAVIRIN. [Suspect]
     Active Substance: RIBAVIRIN
     Dosage: TABLET; DIVIDED DOSES DAILY: TOTAL DAILY DOSE 400 MG
     Route: 048
     Dates: start: 20160205, end: 20160307
  8. COMPOUND DANSHEN (CHINESE TRADITIONAL MEDICINE) [Concomitant]
     Indication: HYPERTENSION
     Dosage: TABLET
     Route: 048
     Dates: start: 201509
  9. DASABUVIR 250 MG TABLET [Suspect]
     Active Substance: DASABUVIR
     Indication: CHRONIC HEPATITIS C
     Dosage: TABLET
     Route: 048
     Dates: start: 20151229, end: 20160321
  10. OMBITASVIR/PARITAPREVIR/RITONAVIR [Suspect]
     Active Substance: OMBITASVIR\PARITAPREVIR\RITONAVIR
     Indication: HEPATIC CIRRHOSIS

REACTIONS (1)
  - Ventricular extrasystoles [Recovered/Resolved]

NARRATIVE: CASE EVENT DATE: 20160128
